FAERS Safety Report 24992150 (Version 3)
Quarter: 2025Q4

REPORT INFORMATION
  Report Type: Spontaneous
  Country: JP (occurrence: JP)
  Receive Date: 20250220
  Receipt Date: 20251017
  Transmission Date: 20260118
  Serious: Yes (Hospitalization, Other)
  Sender: MERCK SHARP & DOHME LLC
  Company Number: JP-009507513-2256826

PATIENT
  Age: 5 Decade
  Sex: Female

DRUGS (3)
  1. KEYTRUDA [Suspect]
     Active Substance: PEMBROLIZUMAB
     Indication: Triple negative breast cancer
     Route: 041
  2. PACLITAXEL [Suspect]
     Active Substance: PACLITAXEL
     Indication: Triple negative breast cancer
  3. CARBOPLATIN [Suspect]
     Active Substance: CARBOPLATIN
     Indication: Triple negative breast cancer

REACTIONS (7)
  - Malaise [Recovering/Resolving]
  - Metastases to meninges [Unknown]
  - Neck pain [Unknown]
  - Pyrexia [Unknown]
  - Immune-mediated hypophysitis [Unknown]
  - Dyspnoea [Recovering/Resolving]
  - Immune-mediated thyroiditis [Unknown]

NARRATIVE: CASE EVENT DATE: 20241105
